FAERS Safety Report 26053453 (Version 1)
Quarter: 2025Q4

REPORT INFORMATION
  Report Type: Spontaneous
  Country: US (occurrence: None)
  Receive Date: 20251115
  Receipt Date: 20251115
  Transmission Date: 20260119
  Serious: Yes (Life-Threatening, Disabling)
  Sender: FDA-CTU
  Company Number: None

PATIENT
  Age: 59 Year
  Sex: Female
  Weight: 85.5 kg

DRUGS (11)
  1. ALPRAZOLAM [Suspect]
     Active Substance: ALPRAZOLAM
     Indication: Anxiety
     Dosage: FREQUENCY : TWICE A DAY;?
     Route: 048
  2. SERTRALINE [Concomitant]
     Active Substance: SERTRALINE HYDROCHLORIDE
  3. VITAMIN B1 [Concomitant]
     Active Substance: THIAMINE HYDROCHLORIDE
  4. B12 [Concomitant]
  5. COLLAGEN [Concomitant]
     Active Substance: COLLAGEN
  6. IODINE [Concomitant]
     Active Substance: IODINE
  7. VitD [Concomitant]
  8. VitC hydroxychloroquine [Concomitant]
  9. SERTRALINE [Concomitant]
     Active Substance: SERTRALINE HYDROCHLORIDE
  10. Beef Organs [Concomitant]
  11. msm Trying to heal my brain [Concomitant]

REACTIONS (5)
  - Brain injury [None]
  - Seizure [None]
  - Post-traumatic stress disorder [None]
  - Impaired quality of life [None]
  - Dependence [None]

NARRATIVE: CASE EVENT DATE: 20170616
